FAERS Safety Report 6870937 (Version 4)
Quarter: 2013Q1

REPORT INFORMATION
  Report Type: Spontaneous
  Country: CA (occurrence: CA)
  Receive Date: 20081231
  Receipt Date: 20130301
  Transmission Date: 20140127
  Serious: Yes (Hospitalization, Other)
  Sender: FDA-Public Use
  Company Number: CA-PFIZER INC-2008158270

PATIENT
  Age: 91 Year
  Sex: Female

DRUGS (12)
  1. LYRICA [Suspect]
     Indication: OSTEOPOROSIS
     Dosage: 50 MG, 1X/DAY
     Route: 048
  2. LYRICA [Suspect]
     Indication: OSTEOARTHRITIS
  3. SALBUTAMOL [Suspect]
     Dosage: 50UG (COMBINED) BY INHALER 1 OR 2 PUFFS, 2X/DAY
  4. IPRATROPIUM [Suspect]
     Dosage: 500 UG, UNK
  5. OMEPRAZOLE [Concomitant]
     Dosage: 20 MG, 1X/DAY
  6. CALCIUM CARBONATE [Concomitant]
     Dosage: 500 MG, 1X/DAY
  7. FLUTICASONE [Concomitant]
     Dosage: 125 UG, UNK
  8. ACETAMINOPHEN [Concomitant]
     Dosage: 325-600 MG DAILY
  9. VITAMIN D [Concomitant]
     Dosage: 400 UNITS DAILY
  10. CELECOXIB [Concomitant]
     Dosage: 100 MG, ONCE OR TWICE DAILY
  11. ETIDRONATE [Concomitant]
     Dosage: 400 MG, 1X/DAY
  12. IBUPROFEN [Concomitant]
     Dosage: 400 MG, SINGLE

REACTIONS (18)
  - Cough [Unknown]
  - Dyspnoea [Unknown]
  - Chronic obstructive pulmonary disease [Unknown]
  - Tachycardia [Recovered/Resolved]
  - Thrombocytopenia [Recovered/Resolved]
  - Blood creatinine increased [Unknown]
  - Neutrophil function disorder [Unknown]
  - Chest pain [Unknown]
  - Oxygen saturation decreased [Recovered/Resolved]
  - Urinary tract infection [Unknown]
  - C-reactive protein increased [Unknown]
  - Wheezing [Unknown]
  - Atelectasis [Unknown]
  - Palpitations [Unknown]
  - Anxiety [Unknown]
  - White blood cell count increased [Unknown]
  - Blood pressure increased [Unknown]
  - Blood lactate dehydrogenase increased [Unknown]
